FAERS Safety Report 19252836 (Version 1)
Quarter: 2021Q2

REPORT INFORMATION
  Report Type: Spontaneous
  Country: US (occurrence: US)
  Receive Date: 20210512
  Receipt Date: 20210512
  Transmission Date: 20210717
  Serious: Yes (Hospitalization)
  Sender: FDA-Public Use
  Company Number: None

PATIENT
  Age: 69 Year
  Sex: Female
  Weight: 64 kg

DRUGS (2)
  1. DURVALUMAB 50 MG/ML 2.4 ML VIAL (TWO USED) [Suspect]
     Active Substance: DURVALUMAB
     Indication: ADENOCARCINOMA
     Route: 042
     Dates: start: 20201110
  2. DURVALUMAB 50 MG/ML 10 ML VIAL (ONE USED) [Suspect]
     Active Substance: DURVALUMAB
     Indication: ADENOCARCINOMA
     Route: 042
     Dates: start: 20201110

REACTIONS (3)
  - Nausea [None]
  - Vomiting [None]
  - Dizziness [None]

NARRATIVE: CASE EVENT DATE: 20210422
